FAERS Safety Report 25848591 (Version 1)
Quarter: 2025Q3

REPORT INFORMATION
  Report Type: Spontaneous
  Country: KW (occurrence: KW)
  Receive Date: 20250925
  Receipt Date: 20250925
  Transmission Date: 20251020
  Serious: Yes (Death, Other)
  Sender: APELLIS PHARMACEUTICALS
  Company Number: KW-BIOVITRUM-2025-KW-013005

PATIENT

DRUGS (15)
  1. PEGCETACOPLAN [Suspect]
     Active Substance: PEGCETACOPLAN
     Indication: Thrombotic microangiopathy
     Dosage: TWICE WEEKLY
     Dates: start: 20250320
  2. PEGCETACOPLAN [Suspect]
     Active Substance: PEGCETACOPLAN
     Indication: Haemophagocytic lymphohistiocytosis
  3. PEGCETACOPLAN [Suspect]
     Active Substance: PEGCETACOPLAN
     Indication: Chronic kidney disease
  4. GAMIFANT [Suspect]
     Active Substance: EMAPALUMAB-LZSG
     Indication: Product used for unknown indication
  5. AVATROMBOPAG [Suspect]
     Active Substance: AVATROMBOPAG
     Indication: Product used for unknown indication
  6. ECULIZUMAB [Suspect]
     Active Substance: ECULIZUMAB
     Indication: Product used for unknown indication
  7. LETERMOVIR [Suspect]
     Active Substance: LETERMOVIR
     Indication: Product used for unknown indication
  8. ERYTHROPOIETIN [Suspect]
     Active Substance: ERYTHROPOIETIN
     Indication: Product used for unknown indication
  9. AMBISOME [Suspect]
     Active Substance: AMPHOTERICIN B
     Indication: Product used for unknown indication
  10. CIPROFLOXACIN [Suspect]
     Active Substance: CIPROFLOXACIN
     Indication: Product used for unknown indication
  11. PENICILLIN G SODIUM [Suspect]
     Active Substance: PENICILLIN G SODIUM
     Indication: Product used for unknown indication
  12. PIPERACILLIN SODIUM\TAZOBACTAM SODIUM [Suspect]
     Active Substance: PIPERACILLIN SODIUM\TAZOBACTAM SODIUM
     Indication: Product used for unknown indication
  13. AMLODIPINE [Suspect]
     Active Substance: AMLODIPINE BESYLATE
     Indication: Product used for unknown indication
  14. MORPHINE [Suspect]
     Active Substance: MORPHINE
     Indication: Product used for unknown indication
  15. HYDRALAZINE [Suspect]
     Active Substance: HYDRALAZINE HYDROCHLORIDE
     Indication: Product used for unknown indication

REACTIONS (2)
  - Cardio-respiratory arrest [Fatal]
  - Off label use [Recovered/Resolved]
